FAERS Safety Report 5014697-9 (Version None)
Quarter: 2006Q2

REPORT INFORMATION
  Report Type: 
  Country: None (occurrence: None)
  Receive Date: 20060518
  Receipt Date: 20060508
  Transmission Date: 20061013
  Serious: Yes (Death, Hospitalization)
  Sender: FDA-Public Use
  Company Number: THYM-10954

PATIENT
  Age: 65 Year
  Sex: Male
  Weight: 88 kg

DRUGS (5)
  1. THYMOGLOBULIN [Suspect]
     Indication: LIVER TRANSPLANT
     Dosage: 1.5 MG/KG ONCE IV
     Route: 042
     Dates: start: 20051219, end: 20051220
  2. FLUCONAZOLE [Concomitant]
  3. CASPOFUNGIN [Concomitant]
  4. LINEZOLID [Concomitant]
  5. FUROSEMIDE [Concomitant]

REACTIONS (7)
  - BILE DUCT NECROSIS [None]
  - COMPLICATIONS OF TRANSPLANTED LIVER [None]
  - LUNG INFECTION PSEUDOMONAL [None]
  - MULTI-ORGAN FAILURE [None]
  - PROTHROMBIN TIME PROLONGED [None]
  - SEPSIS [None]
  - SYSTEMIC INFLAMMATORY RESPONSE SYNDROME [None]
